FAERS Safety Report 13696584 (Version 7)
Quarter: 2018Q4

REPORT INFORMATION
  Report Type: Report from Study
  Country: CN (occurrence: CN)
  Receive Date: 20170628
  Receipt Date: 20181129
  Transmission Date: 20190204
  Serious: Yes (Other)
  Sender: FDA-Public Use
  Company Number: PHHY2017CN094200

PATIENT
  Age: 44 Year
  Sex: Female

DRUGS (47)
  1. MYFORTIC [Suspect]
     Active Substance: MYCOPHENOLATE SODIUM
     Indication: IMMUNOSUPPRESSANT DRUG THERAPY
     Dosage: 1620 MG, QD
     Route: 065
     Dates: start: 20170327, end: 20170327
  2. MYFORTIC [Suspect]
     Active Substance: MYCOPHENOLATE SODIUM
     Dosage: 1440 MG, QD
     Route: 065
     Dates: start: 20170328, end: 20180502
  3. GLYCERIN. [Concomitant]
     Active Substance: GLYCERIN
     Indication: PRODUCT USED FOR UNKNOWN INDICATION
     Dosage: 1 DF, QD
     Route: 065
     Dates: start: 20170326, end: 20170326
  4. ATROPINE SULFATE. [Concomitant]
     Active Substance: ATROPINE SULFATE
     Indication: PRODUCT USED FOR UNKNOWN INDICATION
     Dosage: 2.5 MG, QD
     Route: 042
     Dates: start: 20170327, end: 20170327
  5. CEFOXITIN SODIUM [Concomitant]
     Active Substance: CEFOXITIN SODIUM
     Indication: INFECTION PROPHYLAXIS
     Dosage: 1 G, QD
     Route: 042
     Dates: start: 20170326, end: 20170326
  6. METHYLPREDNISOLONE. [Suspect]
     Active Substance: METHYLPREDNISOLONE
     Indication: IMMUNOSUPPRESSANT DRUG THERAPY
     Dosage: 500 MG, QD
     Route: 065
     Dates: start: 20170326, end: 20170326
  7. TACROLIMUS. [Suspect]
     Active Substance: TACROLIMUS
     Dosage: 10 MG, QD
     Route: 065
     Dates: start: 20170408
  8. MANNITOL. [Concomitant]
     Active Substance: MANNITOL
     Indication: POLYURIA
     Dosage: 250 ML, QD
     Route: 042
     Dates: start: 20170327, end: 20170327
  9. HEPARIN SODIUM. [Concomitant]
     Active Substance: HEPARIN SODIUM
     Indication: PRODUCT USED FOR UNKNOWN INDICATION
     Dosage: 37500 U, QD
     Route: 042
     Dates: start: 20170327, end: 20170327
  10. MIDAZOLAM [Concomitant]
     Active Substance: MIDAZOLAM HYDROCHLORIDE
     Indication: ANAESTHESIA
     Dosage: 1 MG, QD
     Route: 042
     Dates: start: 20170327, end: 20170327
  11. AMLODIPINE BESYLATE. [Concomitant]
     Active Substance: AMLODIPINE BESYLATE
     Indication: HYPERTENSION
     Dosage: 5 MG, BID
     Route: 048
     Dates: start: 20180329
  12. SODIUM BICARBONATE. [Concomitant]
     Active Substance: SODIUM BICARBONATE
     Indication: PRODUCT USED FOR UNKNOWN INDICATION
     Dosage: 250 ML, QD
     Route: 042
     Dates: start: 20170327, end: 20170327
  13. REMIFENTANIL HYDROCHLORIDE. [Concomitant]
     Active Substance: REMIFENTANIL HYDROCHLORIDE
     Indication: ANAESTHESIA
     Dosage: 1 MG, QD
     Route: 042
     Dates: start: 20170327, end: 20170327
  14. SUFENTANIL CITRATE. [Concomitant]
     Active Substance: SUFENTANIL CITRATE
     Indication: ANAESTHESIA
     Dosage: 100 UG, QD
     Route: 042
     Dates: start: 20170327, end: 20170327
  15. BASILIXIMAB [Suspect]
     Active Substance: BASILIXIMAB
     Indication: IMMUNOSUPPRESSANT DRUG THERAPY
     Dosage: 20 MG, QD
     Route: 065
     Dates: start: 20170331, end: 20170331
  16. METHYLPREDNISOLONE. [Suspect]
     Active Substance: METHYLPREDNISOLONE
     Dosage: 500 MG, QD
     Route: 065
     Dates: start: 20170327, end: 20170329
  17. PREDNISONE. [Suspect]
     Active Substance: PREDNISONE
     Dosage: 25 MG, QD
     Route: 065
     Dates: start: 20170406
  18. NEOSTIGMINE METHYLSULFATE. [Concomitant]
     Active Substance: NEOSTIGMINE METHYLSULFATE
     Indication: PRODUCT USED FOR UNKNOWN INDICATION
     Dosage: 2 MG, QD
     Route: 042
     Dates: start: 20170327, end: 20170327
  19. SODIUM BICARBONATE. [Concomitant]
     Active Substance: SODIUM BICARBONATE
     Dosage: 2 G, TID
     Route: 048
     Dates: start: 20170510
  20. TROPISETRON HYDROCHLORIDE [Concomitant]
     Active Substance: TROPISETRON HYDROCHLORIDE
     Indication: PRODUCT USED FOR UNKNOWN INDICATION
     Dosage: 15 MG, QD
     Route: 042
     Dates: start: 20170327, end: 20170327
  21. CEFOPERAZONE SODIUM AND SULBACTAM SODIUM [Concomitant]
     Active Substance: CEFOPERAZONE SODIUM\SULBACTAM SODIUM
     Dosage: 1.5 G, BID
     Route: 042
     Dates: start: 20170328
  22. FUROSEMIDE. [Concomitant]
     Active Substance: FUROSEMIDE
     Indication: POLYURIA
     Dosage: 100 MG, QD
     Route: 042
     Dates: start: 20170327, end: 20170327
  23. AROTINOLOL HYDROCHLORIDE [Concomitant]
     Active Substance: AROTINOLOL HYDROCHLORIDE
     Indication: HYPERTENSION
     Dosage: 10 MG, BID
     Route: 048
     Dates: start: 20170401
  24. METHYLPREDNISOLONE. [Suspect]
     Active Substance: METHYLPREDNISOLONE
     Dosage: 500 MG, QD
     Route: 065
     Dates: start: 20170403, end: 20170403
  25. AMLODIPINE BESYLATE. [Concomitant]
     Active Substance: AMLODIPINE BESYLATE
     Indication: BLOOD PRESSURE INCREASED
     Dosage: 5 MG, BID
     Route: 048
     Dates: start: 20170328, end: 20170328
  26. LACTATED RINGERS SOLUTION [Concomitant]
     Active Substance: CALCIUM CHLORIDE\POTASSIUM CHLORIDE\SODIUM CHLORIDE\SODIUM LACTATE
     Indication: PRODUCT USED FOR UNKNOWN INDICATION
     Dosage: 9000 ML, QD
     Route: 042
     Dates: start: 20170327, end: 20170327
  27. LIDOCAINE HYDROCHLORIDE. [Concomitant]
     Active Substance: LIDOCAINE HYDROCHLORIDE
     Indication: LOCAL ANAESTHESIA
     Dosage: 10 ML, QD
     Route: 042
     Dates: start: 20170327, end: 20170327
  28. EPHEDRINE HYDROCHLORIDE [Concomitant]
     Active Substance: EPHEDRINE HYDROCHLORIDE
     Indication: BLOOD PRESSURE DECREASED
     Dosage: 30 MG, QD
     Route: 042
     Dates: start: 20170327, end: 20170327
  29. INSULIN [Concomitant]
     Active Substance: INSULIN NOS
     Indication: HYPERGLYCAEMIA
     Dosage: 6 U, TID
     Route: 042
     Dates: start: 20170327, end: 20170327
  30. CEFOPERAZONE SODIUM AND SULBACTAM SODIUM [Concomitant]
     Active Substance: CEFOPERAZONE SODIUM\SULBACTAM SODIUM
     Indication: INFECTION PROPHYLAXIS
     Dosage: 3 G, QD
     Route: 042
     Dates: start: 20170327, end: 20170327
  31. NICARDIPINE HYDROCHLORIDE. [Concomitant]
     Active Substance: NICARDIPINE HYDROCHLORIDE
     Indication: HYPERTENSION
     Dosage: 40 MG, BID
     Route: 048
     Dates: start: 20170403
  32. PROPOFOL. [Concomitant]
     Active Substance: PROPOFOL
     Indication: ANAESTHESIA
     Dosage: 0.2 G, QD
     Route: 042
     Dates: start: 20170327, end: 20170327
  33. LACTATED RINGERS SOLUTION [Concomitant]
     Active Substance: CALCIUM CHLORIDE\POTASSIUM CHLORIDE\SODIUM CHLORIDE\SODIUM LACTATE
     Dosage: 500 ML, BID
     Route: 042
     Dates: start: 20170327, end: 20170327
  34. PANTOPRAZOLE SODIUM. [Concomitant]
     Active Substance: PANTOPRAZOLE SODIUM
     Indication: PROPHYLAXIS
     Dosage: 40 MG, BID
     Route: 042
     Dates: start: 20170327, end: 20180404
  35. CEFUROXIME AXETIL. [Concomitant]
     Active Substance: CEFUROXIME AXETIL
     Indication: INFECTION PROPHYLAXIS
     Dosage: 0.25 G, BID
     Route: 048
     Dates: start: 20170405
  36. MYFORTIC [Suspect]
     Active Substance: MYCOPHENOLATE SODIUM
     Indication: RENAL TRANSPLANT
     Dosage: 540 MG, QD
     Route: 065
     Dates: start: 20170326, end: 20170326
  37. MYFORTIC [Suspect]
     Active Substance: MYCOPHENOLATE SODIUM
     Dosage: 1260 MG, QD
     Route: 065
     Dates: start: 20170503
  38. TACROLIMUS. [Suspect]
     Active Substance: TACROLIMUS
     Indication: IMMUNOSUPPRESSANT DRUG THERAPY
     Dosage: 8 MG, QD
     Route: 065
     Dates: start: 20170327, end: 20170327
  39. BASILIXIMAB [Suspect]
     Active Substance: BASILIXIMAB
     Indication: RENAL TRANSPLANT
     Dosage: 20 MG, QD
     Route: 065
     Dates: start: 20170327, end: 20170327
  40. PREDNISONE. [Suspect]
     Active Substance: PREDNISONE
     Indication: IMMUNOSUPPRESSANT DRUG THERAPY
     Dosage: 30 MG, QD
     Route: 065
     Dates: start: 20170330, end: 20170330
  41. PREDNISONE. [Suspect]
     Active Substance: PREDNISONE
     Dosage: 30 MG, QD
     Route: 065
     Dates: start: 20170331, end: 20170405
  42. TACROLIMUS. [Suspect]
     Active Substance: TACROLIMUS
     Dosage: 8 MG, QD
     Route: 065
     Dates: start: 20170328, end: 20170407
  43. ROCURONIUM BROMIDE. [Concomitant]
     Active Substance: ROCURONIUM BROMIDE
     Indication: ANAESTHESIA
     Dosage: 50 MG, QD
     Route: 042
     Dates: start: 20170327, end: 20170327
  44. NOREPINEPHRINE BITARTRATE. [Concomitant]
     Active Substance: NOREPINEPHRINE BITARTRATE
     Indication: BLOOD PRESSURE DECREASED
     Dosage: 2 MG, QD
     Route: 042
     Dates: start: 20170327, end: 20170327
  45. TRAMADOL HYDROCHLORIDE. [Concomitant]
     Active Substance: TRAMADOL HYDROCHLORIDE
     Indication: ANAESTHESIA
     Dosage: 0.10 G, QD
     Route: 042
     Dates: start: 20170327, end: 20170327
  46. CISATRACURIUM BESILATE [Concomitant]
     Active Substance: CISATRACURIUM BESYLATE
     Indication: ANAESTHESIA
     Dosage: 20 MG, QD
     Route: 042
     Dates: start: 20170327, end: 20170327
  47. TRIMEBUTINE MALEATE [Concomitant]
     Active Substance: TRIMEBUTINE MALEATE
     Indication: GASTRIC DISORDER
     Dosage: 0.1 G, TID
     Route: 048
     Dates: start: 20170406

REACTIONS (16)
  - White blood cell count increased [Recovering/Resolving]
  - Blood albumin decreased [Recovering/Resolving]
  - Neutrophil count increased [Recovering/Resolving]
  - Urinary tract infection [Recovering/Resolving]
  - Lymphocyte count decreased [Recovering/Resolving]
  - Blood glucose increased [Recovering/Resolving]
  - Gastrooesophageal reflux disease [Recovering/Resolving]
  - Platelet count decreased [Recovering/Resolving]
  - Gastrointestinal disorder [Recovering/Resolving]
  - Upper respiratory tract infection [Recovering/Resolving]
  - Diarrhoea [Recovering/Resolving]
  - Aspartate aminotransferase increased [Unknown]
  - Alanine aminotransferase increased [Recovering/Resolving]
  - Haemoglobin decreased [Recovering/Resolving]
  - Protein urine present [Recovering/Resolving]
  - Red blood cells urine positive [Recovered/Resolved]

NARRATIVE: CASE EVENT DATE: 20170330
